FAERS Safety Report 21080552 (Version 1)
Quarter: 2022Q3

REPORT INFORMATION
  Report Type: Spontaneous
  Country: US (occurrence: US)
  Receive Date: 20220714
  Receipt Date: 20220714
  Transmission Date: 20221026
  Serious: No
  Sender: FDA-Public Use
  Company Number: US-RECKITT BENCKISER HEALTHCARE INT LIMITED-RB-080714-2022

PATIENT
  Age: 59 Year
  Sex: Male

DRUGS (1)
  1. MUCINEX [Suspect]
     Active Substance: GUAIFENESIN
     Indication: Product used for unknown indication
     Dosage: TOOK TOTAL 6 DOESES AT UNKNOWN FREQUENCY
     Route: 048
     Dates: start: 20211221, end: 20211222

REACTIONS (3)
  - Abdominal discomfort [Recovered/Resolved]
  - Physical product label issue [Unknown]
  - Product complaint [Unknown]

NARRATIVE: CASE EVENT DATE: 20211222
